FAERS Safety Report 21212647 (Version 1)
Quarter: 2022Q3

REPORT INFORMATION
  Report Type: Spontaneous
  Country: US (occurrence: None)
  Receive Date: 20220814
  Receipt Date: 20220814
  Transmission Date: 20221027
  Serious: Yes (Other)
  Sender: FDA-Public Use
  Company Number: None

PATIENT
  Age: 48 Year
  Sex: Female
  Weight: 77.4 kg

DRUGS (16)
  1. RECLAST [Suspect]
     Active Substance: ZOLEDRONIC ACID
     Indication: Osteoporosis
  2. CLONAZEPAM [Concomitant]
     Active Substance: CLONAZEPAM
  3. AMBIEN [Concomitant]
     Active Substance: ZOLPIDEM TARTRATE
  4. TYLENOL [Concomitant]
     Active Substance: ACETAMINOPHEN
  5. BENADRYL [Concomitant]
     Active Substance: DIPHENHYDRAMINE HYDROCHLORIDE
  6. VITAMIN B [Concomitant]
     Active Substance: VITAMIN B
  7. VITAMIN D [Concomitant]
     Active Substance: VITAMIN D NOS
  8. Solaray High energy multivitamin [Concomitant]
  9. Soloaray Vitamin C [Concomitant]
  10. CALCIUM CITRATE\CHOLECALCIFEROL [Concomitant]
     Active Substance: CALCIUM CITRATE\CHOLECALCIFEROL
  11. Nature^s Bounty Cranberry [Concomitant]
  12. VITAMIN E [Concomitant]
     Active Substance: .ALPHA.-TOCOPHEROL
  13. Essential Elements plus zinc [Concomitant]
  14. CYANOCOBALAMIN [Concomitant]
     Active Substance: CYANOCOBALAMIN
  15. NATURE^S BOUNTY ZINC [Concomitant]
  16. HIGHLAND^S LEG CRAMPS [Concomitant]

REACTIONS (15)
  - Pyrexia [None]
  - Pain [None]
  - Dizziness [None]
  - Vomiting [None]
  - Fall [None]
  - Oropharyngeal pain [None]
  - Odynophagia [None]
  - Myalgia [None]
  - Muscle swelling [None]
  - Bone pain [None]
  - Headache [None]
  - Arthralgia [None]
  - Eye pain [None]
  - Nausea [None]
  - Contraindicated product administered [None]

NARRATIVE: CASE EVENT DATE: 20220811
